FAERS Safety Report 13230438 (Version 1)
Quarter: 2017Q1

REPORT INFORMATION
  Report Type: Spontaneous
  Country: JP (occurrence: JP)
  Receive Date: 20170214
  Receipt Date: 20170214
  Transmission Date: 20170428
  Serious: Yes (Other)
  Sender: FDA-Public Use
  Company Number: JP-PFIZER INC-2017061476

PATIENT
  Age: 39 Year
  Sex: Male
  Weight: 76 kg

DRUGS (35)
  1. CAMPTO [Suspect]
     Active Substance: IRINOTECAN
     Dosage: 283.5 MG, 1X/DAY
     Route: 041
     Dates: start: 20140603, end: 20140603
  2. CAMPTO [Suspect]
     Active Substance: IRINOTECAN
     Dosage: 265.5 MG, 1X/DAY
     Route: 041
     Dates: start: 20140812, end: 20140812
  3. CAMPTO [Suspect]
     Active Substance: IRINOTECAN
     Dosage: 265.5 MG, 1X/DAY
     Route: 041
     Dates: start: 20140826, end: 20140826
  4. LEVOFOLINATE [Suspect]
     Active Substance: LEVOLEUCOVORIN CALCIUM
     Indication: PANCREATIC CARCINOMA
     Dosage: 378 MG, 1X/DAY
     Route: 041
     Dates: start: 20140502, end: 20140502
  5. LEVOFOLINATE [Suspect]
     Active Substance: LEVOLEUCOVORIN CALCIUM
     Dosage: 354 MG, 1X/DAY
     Route: 041
     Dates: start: 20140812, end: 20140812
  6. CAMPTO [Suspect]
     Active Substance: IRINOTECAN
     Dosage: 283.5 MG, 1X/DAY
     Route: 041
     Dates: start: 20140516, end: 20140516
  7. CAMPTO [Suspect]
     Active Substance: IRINOTECAN
     Dosage: 265.5 MG, 1X/DAY
     Route: 041
     Dates: start: 20141014, end: 20141014
  8. ELPLAT [Suspect]
     Active Substance: OXALIPLATIN
     Dosage: 150.5 MG, 1X/DAY
     Route: 041
     Dates: start: 20140812, end: 20140812
  9. LEVOFOLINATE [Suspect]
     Active Substance: LEVOLEUCOVORIN CALCIUM
     Dosage: 354 MG, 1X/DAY
     Route: 041
     Dates: start: 20140617, end: 20140617
  10. 5-FU [Concomitant]
     Active Substance: FLUOROURACIL
     Dosage: UNK
     Dates: start: 20140502, end: 20141028
  11. CAMPTO [Suspect]
     Active Substance: IRINOTECAN
     Dosage: 265.5 MG, 1X/DAY
     Route: 041
     Dates: start: 20141028, end: 20141028
  12. ELPLAT [Suspect]
     Active Substance: OXALIPLATIN
     Dosage: 150.5 MG, 1X/DAY
     Route: 041
     Dates: start: 20140715, end: 20140715
  13. ELPLAT [Suspect]
     Active Substance: OXALIPLATIN
     Dosage: 150.5 MG, 1X/DAY
     Route: 041
     Dates: start: 20140930, end: 20140930
  14. LEVOFOLINATE [Suspect]
     Active Substance: LEVOLEUCOVORIN CALCIUM
     Dosage: 378 MG, 1X/DAY
     Route: 041
     Dates: start: 20140603, end: 20140603
  15. LEVOFOLINATE [Suspect]
     Active Substance: LEVOLEUCOVORIN CALCIUM
     Dosage: 354 MG, 1X/DAY
     Route: 041
     Dates: start: 20140930, end: 20140930
  16. ELPLAT [Suspect]
     Active Substance: OXALIPLATIN
     Dosage: 150.5 MG, 1X/DAY
     Route: 041
     Dates: start: 20140909, end: 20140909
  17. ELPLAT [Suspect]
     Active Substance: OXALIPLATIN
     Dosage: 150.5 MG, 1X/DAY
     Route: 041
     Dates: start: 20141028, end: 20141028
  18. LEVOFOLINATE [Suspect]
     Active Substance: LEVOLEUCOVORIN CALCIUM
     Dosage: 378 MG, 1X/DAY
     Route: 041
     Dates: start: 20140516, end: 20140516
  19. INSULIN [Concomitant]
     Active Substance: INSULIN NOS
     Dosage: UNK
     Dates: start: 20140805
  20. CAMPTO [Suspect]
     Active Substance: IRINOTECAN
     Dosage: 265.5 MG, 1X/DAY
     Route: 041
     Dates: start: 20140617, end: 20140617
  21. ELPLAT [Suspect]
     Active Substance: OXALIPLATIN
     Dosage: 160.7 MG, 1X/DAY
     Route: 041
     Dates: start: 20140516, end: 20140516
  22. ELPLAT [Suspect]
     Active Substance: OXALIPLATIN
     Dosage: 150.5 MG, 1X/DAY
     Route: 041
     Dates: start: 20140617, end: 20140617
  23. LEVOFOLINATE [Suspect]
     Active Substance: LEVOLEUCOVORIN CALCIUM
     Dosage: 354 MG, 1X/DAY
     Route: 041
     Dates: start: 20140715, end: 20140715
  24. CAMPTO [Suspect]
     Active Substance: IRINOTECAN
     Dosage: 265.5 MG, 1X/DAY
     Route: 041
     Dates: start: 20140909, end: 20140909
  25. ELPLAT [Suspect]
     Active Substance: OXALIPLATIN
     Dosage: 150.5 MG, 1X/DAY
     Route: 041
     Dates: start: 20141014, end: 20141014
  26. LEVOFOLINATE [Suspect]
     Active Substance: LEVOLEUCOVORIN CALCIUM
     Dosage: 354 MG, 1X/DAY
     Route: 041
     Dates: start: 20141014, end: 20141014
  27. LEVOFOLINATE [Suspect]
     Active Substance: LEVOLEUCOVORIN CALCIUM
     Dosage: 354 MG, 1X/DAY
     Route: 041
     Dates: start: 20141028, end: 20141028
  28. CAMPTO [Suspect]
     Active Substance: IRINOTECAN
     Dosage: 265.5 MG, 1X/DAY
     Route: 041
     Dates: start: 20140930, end: 20140930
  29. ELPLAT [Suspect]
     Active Substance: OXALIPLATIN
     Indication: PANCREATIC CARCINOMA
     Dosage: 160.7 MG, 1X/DAY
     Route: 041
     Dates: start: 20140502, end: 20140502
  30. LEVOFOLINATE [Suspect]
     Active Substance: LEVOLEUCOVORIN CALCIUM
     Dosage: 354 MG, 1X/DAY
     Route: 041
     Dates: start: 20140826, end: 20140826
  31. CAMPTO [Suspect]
     Active Substance: IRINOTECAN
     Indication: PANCREATIC CARCINOMA
     Dosage: 283.5 MG, 1X/DAY
     Route: 041
     Dates: start: 20140502, end: 20140502
  32. CAMPTO [Suspect]
     Active Substance: IRINOTECAN
     Dosage: 265.5 MG, 1X/DAY
     Route: 041
     Dates: start: 20140715, end: 20140715
  33. ELPLAT [Suspect]
     Active Substance: OXALIPLATIN
     Dosage: 160.7 MG, 1X/DAY
     Route: 041
     Dates: start: 20140603, end: 20140603
  34. ELPLAT [Suspect]
     Active Substance: OXALIPLATIN
     Dosage: 150.5 MG, 1X/DAY
     Route: 041
     Dates: start: 20140826, end: 20140826
  35. LEVOFOLINATE [Suspect]
     Active Substance: LEVOLEUCOVORIN CALCIUM
     Dosage: 354 MG, 1X/DAY
     Route: 041
     Dates: start: 20140909, end: 20140909

REACTIONS (6)
  - Neoplasm progression [Unknown]
  - Weight decreased [Unknown]
  - Diarrhoea [Unknown]
  - Diabetes mellitus inadequate control [Unknown]
  - Nausea [Unknown]
  - Pyrexia [Unknown]

NARRATIVE: CASE EVENT DATE: 20140510
